FAERS Safety Report 5801037-8 (Version None)
Quarter: 2008Q3

REPORT INFORMATION
  Report Type: 
  Country: None (occurrence: None)
  Receive Date: 20080704
  Receipt Date: 20080630
  Transmission Date: 20090109
  Serious: Yes (Hospitalization)
  Sender: FDA-Public Use
  Company Number: IR-BAYER-200821440GPV

PATIENT
  Age: 23 Year
  Sex: Male

DRUGS (1)
  1. BETAFERON [Suspect]
     Indication: MULTIPLE SCLEROSIS
     Dosage: UNIT DOSE: 250 ?G
     Route: 058
     Dates: start: 20070101

REACTIONS (1)
  - INJECTION SITE NECROSIS [None]
